FAERS Safety Report 4362329-5 (Version None)
Quarter: 2004Q2

REPORT INFORMATION
  Report Type: 
  Country: None (occurrence: None)
  Receive Date: 20040520
  Receipt Date: 20040520
  Transmission Date: 20050107
  Serious: No
  Sender: FDA-Public Use
  Company Number: None

PATIENT
  Age: 61 Year

DRUGS (2)
  1. FENTANYL [Suspect]
  2. VERSED [Suspect]

REACTIONS (4)
  - BRONCHOSPASM [None]
  - CHEST DISCOMFORT [None]
  - STRIDOR [None]
  - WHEEZING [None]
